FAERS Safety Report 21404205 (Version 2)
Quarter: 2022Q4

REPORT INFORMATION
  Report Type: Report from Study
  Country: PT (occurrence: PT)
  Receive Date: 20221003
  Receipt Date: 20221128
  Transmission Date: 20230112
  Serious: Yes (Other)
  Sender: FDA-Public Use
  Company Number: PT-GILEAD-2022-0599829

PATIENT
  Age: 46 Year
  Sex: Female
  Weight: 65 kg

DRUGS (8)
  1. SACITUZUMAB GOVITECAN [Suspect]
     Active Substance: SACITUZUMAB GOVITECAN
     Indication: Triple negative breast cancer
     Dosage: 200 MG AT EACH CYCLE
     Route: 065
     Dates: start: 20220311, end: 20220428
  2. SACITUZUMAB GOVITECAN [Suspect]
     Active Substance: SACITUZUMAB GOVITECAN
     Dosage: 200 MG AT EACH CYCLE
     Route: 065
     Dates: start: 20220525, end: 20220701
  3. SACITUZUMAB GOVITECAN [Suspect]
     Active Substance: SACITUZUMAB GOVITECAN
     Dosage: 200 MG AT EACH CYCLE
     Route: 065
     Dates: start: 20220711, end: 20220914
  4. GABAPENTIN [Concomitant]
     Active Substance: GABAPENTIN
     Dosage: 100 MG, UNK
     Route: 048
  5. GABAPENTIN [Concomitant]
     Active Substance: GABAPENTIN
     Dosage: 100 MG, UNK
     Route: 048
  6. TAPENTADOL [Concomitant]
     Active Substance: TAPENTADOL
     Dosage: 100 MG, UNK
     Route: 048
  7. MORPHINE [Concomitant]
     Active Substance: MORPHINE
     Dosage: 10 MG, UNK
     Route: 048
  8. DIAZEPAM [Concomitant]
     Active Substance: DIAZEPAM

REACTIONS (4)
  - Disease progression [Unknown]
  - Cough [Recovered/Resolved]
  - Fatigue [Unknown]
  - Dyspnoea [Unknown]

NARRATIVE: CASE EVENT DATE: 20220101
